FAERS Safety Report 9201031 (Version 4)
Quarter: 2014Q2

REPORT INFORMATION
  Report Type: Spontaneous
  Country: US (occurrence: US)
  Receive Date: 20130401
  Receipt Date: 20140606
  Transmission Date: 20141212
  Serious: Yes (Death, Other)
  Sender: FDA-Public Use
  Company Number: US-JNJFOC-20130318134

PATIENT
  Age: 89 Year
  Sex: Male
  Weight: 66.23 kg

DRUGS (10)
  1. XARELTO [Suspect]
     Indication: CEREBROVASCULAR ACCIDENT PROPHYLAXIS
     Route: 048
     Dates: start: 20120214, end: 201303
  2. XARELTO [Suspect]
     Indication: ATRIAL FIBRILLATION
     Route: 048
     Dates: start: 20120214, end: 201303
  3. DILANTIN [Concomitant]
     Route: 065
     Dates: start: 20000929
  4. LASIX [Concomitant]
     Dosage: 20 MG ALTERNATING WITH 40 MG
     Route: 065
     Dates: start: 20110113
  5. SIMVASTATIN [Concomitant]
     Route: 048
     Dates: start: 20040726
  6. OMEPRAZOLE [Concomitant]
     Route: 048
     Dates: start: 20110627
  7. SYNTHROID [Concomitant]
     Route: 048
     Dates: start: 20110202
  8. LEXAPRO [Concomitant]
     Route: 048
     Dates: start: 20110113
  9. FLOMAX [Concomitant]
     Dosage: 4 MG PA HS
     Route: 065
     Dates: start: 20121029
  10. ULTRAM [Concomitant]
     Route: 065
     Dates: start: 20110523

REACTIONS (1)
  - Haemorrhage intracranial [Fatal]
